FAERS Safety Report 11086562 (Version 1)
Quarter: 2015Q2

REPORT INFORMATION
  Report Type: Spontaneous
  Country: DE (occurrence: DE)
  Receive Date: 20150504
  Receipt Date: 20150504
  Transmission Date: 20150821
  Serious: Yes (Hospitalization)
  Sender: FDA-Public Use
  Company Number: DE-ALKEM-000978

PATIENT
  Age: 64 Year
  Sex: Female

DRUGS (3)
  1. SIMVASTATIN. [Concomitant]
     Active Substance: SIMVASTATIN
     Dosage: 10 MG , 0-0-1
  2. METOPROLOL [Concomitant]
     Active Substance: METOPROLOL
  3. METFORMIN [Suspect]
     Active Substance: METFORMIN HYDROCHLORIDE
     Indication: PRODUCT USED FOR UNKNOWN INDICATION
     Dosage: 1,000 MG, 1-0-1
     Dates: start: 201202

REACTIONS (6)
  - Prerenal failure [Recovered/Resolved]
  - Pleural effusion [Recovered/Resolved]
  - Lactic acidosis [Recovered/Resolved]
  - Ascites [Recovered/Resolved]
  - Ventricular tachycardia [Recovered/Resolved]
  - Intestinal ischaemia [Recovered/Resolved]
